FAERS Safety Report 5783011-3 (Version None)
Quarter: 2008Q2

REPORT INFORMATION
  Report Type: 
  Country: None (occurrence: None)
  Receive Date: 20080624
  Receipt Date: 20080619
  Transmission Date: 20081010
  Serious: Yes (Death, Hospitalization, Other)
  Sender: FDA-Public Use
  Company Number: AU-NOVOPROD-276575

PATIENT
  Age: 73 Year
  Sex: Male
  Weight: 88 kg

DRUGS (10)
  1. NOVOSEVEN [Suspect]
     Indication: POST PROCEDURAL HAEMORRHAGE
     Dosage: 3.6 MG, UNK
     Route: 042
     Dates: start: 20070415
  2. NOVOSEVEN [Suspect]
     Dosage: 3.6 MG, UNK
     Route: 042
     Dates: start: 20070415
  3. ASPIRIN [Concomitant]
     Dates: start: 20070414
  4. RED BLOOD CELLS [Concomitant]
     Dosage: 17 UNITS BEFORE FIRST DOSE OF NOVOSEVEN
  5. RED BLOOD CELLS [Concomitant]
     Dosage: 2 UNITS AFTER 1.DOSE OF NOVOSEVEN
  6. FRESH FROZEN PLASMA [Concomitant]
     Dosage: 9 UNITS BEFORE 1. DOSE OF NOVOSEVEN
  7. FRESH FROZEN PLASMA [Concomitant]
     Dosage: 2 UNITS AFTER 1.DOSE OF NOVOSEVEN
  8. PLATELETS [Concomitant]
     Dosage: 5 UNITS BEFORE DOSE 1
  9. PLATELETS [Concomitant]
     Dosage: 1 UNIT AFTER DOSE 1
  10. CRYOPRECIPITATES [Concomitant]
     Dosage: 8 UNITS BEFORE 1 DOSE OF NOVOSEVEN

REACTIONS (6)
  - ARTERIAL THROMBOSIS LIMB [None]
  - LEG AMPUTATION [None]
  - MULTI-ORGAN FAILURE [None]
  - NECROSIS ISCHAEMIC [None]
  - POST PROCEDURAL COMPLICATION [None]
  - RENAL FAILURE ACUTE [None]
